FAERS Safety Report 12595373 (Version 1)
Quarter: 2016Q3

REPORT INFORMATION
  Report Type: Report from Study
  Country: GB (occurrence: GB)
  Receive Date: 20160726
  Receipt Date: 20160726
  Transmission Date: 20161109
  Serious: Yes (Hospitalization, Other)
  Sender: FDA-Public Use
  Company Number: GB-ABBVIE-16K-167-1643527-00

PATIENT
  Sex: Male

DRUGS (21)
  1. LANSOPRAZOLE. [Concomitant]
     Active Substance: LANSOPRAZOLE
     Indication: PRODUCT USED FOR UNKNOWN INDICATION
  2. PREDNISOLONE. [Concomitant]
     Active Substance: PREDNISOLONE
  3. COCODAMOL [Concomitant]
     Active Substance: ACETAMINOPHEN\CODEINE PHOSPHATE
     Indication: PRODUCT USED FOR UNKNOWN INDICATION
     Dosage: 30/500 TABLETS, 1-2 AS NEEDED MAX 4 TIMES A DAY
  4. FUROSEMIDE. [Concomitant]
     Active Substance: FUROSEMIDE
     Indication: PRODUCT USED FOR UNKNOWN INDICATION
  5. LOPERAMIDE [Concomitant]
     Active Substance: LOPERAMIDE
     Indication: PRODUCT USED FOR UNKNOWN INDICATION
  6. WARFARIN [Concomitant]
     Active Substance: WARFARIN
     Indication: ATRIAL FIBRILLATION
  7. WARFARIN [Concomitant]
     Active Substance: WARFARIN
  8. TOLTERODINE [Concomitant]
     Active Substance: TOLTERODINE
     Indication: PRODUCT USED FOR UNKNOWN INDICATION
  9. PREDNISOLONE. [Concomitant]
     Active Substance: PREDNISOLONE
     Indication: CROHN^S DISEASE
  10. PREDNISOLONE. [Concomitant]
     Active Substance: PREDNISOLONE
  11. PREDNISOLONE. [Concomitant]
     Active Substance: PREDNISOLONE
  12. HUMIRA [Suspect]
     Active Substance: ADALIMUMAB
     Indication: CROHN^S DISEASE
     Route: 058
     Dates: start: 2011
  13. DIGOXIN. [Concomitant]
     Active Substance: DIGOXIN
     Indication: PRODUCT USED FOR UNKNOWN INDICATION
     Dosage: AT NIGHT
  14. PARACETAMOL [Concomitant]
     Active Substance: ACETAMINOPHEN
     Indication: PRODUCT USED FOR UNKNOWN INDICATION
  15. HUMIRA [Suspect]
     Active Substance: ADALIMUMAB
     Route: 058
  16. AMITRIPTYLINE [Concomitant]
     Active Substance: AMITRIPTYLINE
     Indication: PRODUCT USED FOR UNKNOWN INDICATION
     Dosage: AT NIGHT
  17. PREDNISOLONE. [Concomitant]
     Active Substance: PREDNISOLONE
  18. AZATHIOPRINE. [Concomitant]
     Active Substance: AZATHIOPRINE
     Indication: PRODUCT USED FOR UNKNOWN INDICATION
     Dosage: AT NIGHT
  19. WARFARIN [Concomitant]
     Active Substance: WARFARIN
     Dosage: 3MG TABLET USUALLY ON 8-9 MG AS PER INR
  20. CALCICHEW D3 FORTE [Concomitant]
     Active Substance: CALCIUM\CHOLECALCIFEROL
     Indication: PRODUCT USED FOR UNKNOWN INDICATION
  21. SIMVASTATIN. [Concomitant]
     Active Substance: SIMVASTATIN
     Indication: PRODUCT USED FOR UNKNOWN INDICATION
     Dosage: AT NIGHT

REACTIONS (30)
  - Decreased appetite [Unknown]
  - Gastrointestinal wall thickening [Unknown]
  - Lung infection [Unknown]
  - Pneumonia viral [Unknown]
  - Crohn^s disease [Unknown]
  - Benign prostatic hyperplasia [Unknown]
  - Night sweats [Unknown]
  - Disseminated tuberculosis [Unknown]
  - Lower respiratory tract infection [Unknown]
  - Spirometry abnormal [Unknown]
  - Pneumonia [Recovering/Resolving]
  - Restlessness [Unknown]
  - Computerised tomogram thorax abnormal [Unknown]
  - Splenic lesion [Unknown]
  - Fall [Unknown]
  - Haemoptysis [Unknown]
  - Faecaloma [Unknown]
  - International normalised ratio increased [Unknown]
  - Rales [Unknown]
  - Coccydynia [Unknown]
  - Pleuritic pain [Unknown]
  - Drug effect incomplete [Unknown]
  - Dyspnoea [Unknown]
  - Abdominal pain [Recovering/Resolving]
  - Atelectasis [Unknown]
  - Cough [Unknown]
  - Pulmonary mass [Unknown]
  - Malaise [Unknown]
  - Pseudodiverticular disease [Unknown]
  - Intestinal stenosis [Unknown]

NARRATIVE: CASE EVENT DATE: 2011
